FAERS Safety Report 6162236-1 (Version None)
Quarter: 2009Q2

REPORT INFORMATION
  Report Type: 
  Country: None (occurrence: None)
  Receive Date: 20090417
  Receipt Date: 20090417
  Transmission Date: 20091009
  Serious: Yes (Other)
  Sender: FDA-Public Use
  Company Number: None

PATIENT
  Age: 70 Year
  Sex: Male
  Weight: 79.3795 kg

DRUGS (1)
  1. BETOPTIC [Suspect]
     Indication: INTRAOCULAR PRESSURE INCREASED
     Dates: start: 20080827, end: 20080827

REACTIONS (3)
  - DRY EYE [None]
  - HEADACHE [None]
  - RETINAL DETACHMENT [None]
